FAERS Safety Report 8957760 (Version 1)
Quarter: 2012Q4

REPORT INFORMATION
  Report Type: 
  Country: US (occurrence: US)
  Receive Date: 20121210
  Receipt Date: 20121210
  Transmission Date: 20130627
  Serious: Yes (Other)
  Sender: FDA-Public Use
  Company Number: US-PFIZER INC-2012308365

PATIENT
  Age: 42 Year
  Sex: Male

DRUGS (9)
  1. CELEBREX [Suspect]
     Dosage: 400 mg, 1x/day
     Route: 048
  2. ACCUPRIL [Suspect]
     Dosage: 5 mg, 1x/day
     Route: 048
  3. ENALAPRIL MALEATE [Concomitant]
     Dosage: 5 mg, 1x/day
     Route: 048
  4. SEROQUEL [Concomitant]
     Dosage: 100 mg, 1x/day
     Route: 048
  5. GLUCOPHAGE [Concomitant]
     Dosage: 500 mg, 2x/day
     Route: 048
  6. TRAMADOL [Concomitant]
     Dosage: 50 mg, 2 tabs orally 3 times a day
     Route: 048
  7. ENALAPRIL [Concomitant]
     Dosage: 2.5 mg, 1x/day
     Route: 048
  8. INSULIN [Concomitant]
     Dosage: U-100 1 cc syringes, 3x/day
  9. HUMULIN 70/30 [Concomitant]
     Dosage: 100unit/mL (70-30) suspension, 2 times per day
     Route: 058

REACTIONS (11)
  - Diabetes mellitus inadequate control [Unknown]
  - Diabetes mellitus [Unknown]
  - Essential hypertension [Unknown]
  - Arthralgia [Unknown]
  - Back pain [Unknown]
  - Abdominal pain [Unknown]
  - Pain in extremity [Unknown]
  - Exostosis [Unknown]
  - Plantar fascial fibromatosis [Unknown]
  - Seasonal affective disorder [Unknown]
  - Onychomycosis [Unknown]
